FAERS Safety Report 4517717-0 (Version None)
Quarter: 2004Q4

REPORT INFORMATION
  Report Type: 
  Country: None (occurrence: None)
  Receive Date: 20041203
  Receipt Date: 20041112
  Transmission Date: 20050328
  Serious: Yes (Life-Threatening, Hospitalization, Other)
  Sender: FDA-Public Use
  Company Number: ES-ABBOTT-04P-144-0280428-00

PATIENT
  Age: 19 Year
  Sex: Female
  Weight: 60 kg

DRUGS (6)
  1. HUMIRA [Suspect]
     Indication: CROHN'S DISEASE
     Route: 058
     Dates: start: 20040731, end: 20040731
  2. HUMIRA [Suspect]
     Route: 058
     Dates: start: 20040801, end: 20041101
  3. CITALOPRAM [Concomitant]
     Indication: DEPRESSION
     Route: 065
     Dates: start: 20040201, end: 20041106
  4. AZATHIOPRINE [Concomitant]
     Indication: CROHN'S DISEASE
     Route: 048
     Dates: end: 20041106
  5. METRONIDAZOLE [Concomitant]
     Indication: CROHN'S DISEASE
     Route: 065
     Dates: end: 20041106
  6. ENTERAL NUTRITION [Concomitant]
     Indication: DRUG USE FOR UNKNOWN INDICATION

REACTIONS (3)
  - INJECTION SITE PAIN [None]
  - OVERDOSE [None]
  - SUICIDE ATTEMPT [None]
